FAERS Safety Report 10306252 (Version 3)
Quarter: 2014Q4

REPORT INFORMATION
  Report Type: Report from Study
  Country: AU (occurrence: AU)
  Receive Date: 20140715
  Receipt Date: 20141222
  Transmission Date: 20150528
  Serious: Yes (Other)
  Sender: FDA-Public Use
  Company Number: PHHY2014AU085765

PATIENT
  Age: 39 Year
  Sex: Male
  Weight: 99.95 kg

DRUGS (4)
  1. CRESTOR [Concomitant]
     Active Substance: ROSUVASTATIN CALCIUM
     Indication: PRODUCT USED FOR UNKNOWN INDICATION
     Dosage: 10 MG, NOCTE
     Route: 048
  2. LITHIUM [Concomitant]
     Active Substance: LITHIUM CARBONATE
     Indication: PRODUCT USED FOR UNKNOWN INDICATION
     Dosage: 250 OT (UNK), MANE
     Route: 048
  3. LITHIUM [Concomitant]
     Active Substance: LITHIUM CARBONATE
     Dosage: 500 OT (UNK), NOCTE
     Route: 048
  4. CLOZARIL [Suspect]
     Active Substance: CLOZAPINE
     Indication: SCHIZOPHRENIA
     Dosage: 225 MG, QD
     Route: 048

REACTIONS (3)
  - Dilatation ventricular [Not Recovered/Not Resolved]
  - Ejection fraction decreased [Recovering/Resolving]
  - Right ventricular dysfunction [Not Recovered/Not Resolved]

NARRATIVE: CASE EVENT DATE: 2010
